FAERS Safety Report 6119813-3 (Version None)
Quarter: 2009Q1

REPORT INFORMATION
  Report Type: 
  Country: None (occurrence: None)
  Receive Date: 20090316
  Receipt Date: 20090310
  Transmission Date: 20090719
  Serious: No
  Sender: FDA-Public Use
  Company Number: CH-EISAI MEDICAL RESEARCH-E2020-04281-SPO-CH

PATIENT
  Sex: Male

DRUGS (3)
  1. ARICEPT [Suspect]
     Indication: DRUG USE FOR UNKNOWN INDICATION
     Route: 048
  2. ARICEPT [Suspect]
     Route: 048
  3. ARICEPT [Suspect]
     Route: 048

REACTIONS (1)
  - PSYCHOTIC DISORDER [None]
